FAERS Safety Report 12676029 (Version 1)
Quarter: 2016Q3

REPORT INFORMATION
  Report Type: Report from Study
  Country: NL (occurrence: NL)
  Receive Date: 20160823
  Receipt Date: 20160823
  Transmission Date: 20161109
  Serious: Yes (Other)
  Sender: FDA-Public Use
  Company Number: NL-AUROBINDO-AUR-APL-2016-10134

PATIENT
  Age: 73 Year
  Sex: Male

DRUGS (4)
  1. ORTERONEL [Suspect]
     Active Substance: ORTERONEL
     Indication: PRODUCT USED FOR UNKNOWN INDICATION
     Dosage: 400 MG, TWO TIMES A DAY
     Route: 065
  2. ORTERONEL [Suspect]
     Active Substance: ORTERONEL
     Dosage: 200 UNK, UNK
     Route: 065
  3. PREDNISONE. [Suspect]
     Active Substance: PREDNISONE
     Indication: PRODUCT USED FOR UNKNOWN INDICATION
     Dosage: 5 MG, TWO TIMES A DAY
     Route: 065
  4. PREDNISONE. [Suspect]
     Active Substance: PREDNISONE
     Dosage: 5 MG, ONCE A DAY
     Route: 065

REACTIONS (1)
  - Fatigue [Recovered/Resolved]
